FAERS Safety Report 8645342 (Version 2)
Quarter: 2012Q4

REPORT INFORMATION
  Report Type: 
  Country: FR (occurrence: FR)
  Receive Date: 20120702
  Receipt Date: 20120918
  Transmission Date: 20130627
  Serious: Yes (Hospitalization)
  Sender: FDA-Public Use
  Company Number: FR-JNJFOC-20120612113

PATIENT
  Age: 71 Year
  Sex: Male

DRUGS (3)
  1. TOPIRAMATE [Suspect]
     Indication: NEURALGIA
     Route: 048
     Dates: start: 20110826, end: 20110904
  2. TAHOR [Concomitant]
     Indication: PRODUCT USED FOR UNKNOWN INDICATION
     Route: 048
  3. CYMBALTA [Concomitant]
     Indication: PRODUCT USED FOR UNKNOWN INDICATION
     Route: 048

REACTIONS (4)
  - Toxic skin eruption [Recovered/Resolved]
  - Mucosal erosion [Recovered/Resolved]
  - Skin test negative [Unknown]
  - Off label use [Recovered/Resolved]
